FAERS Safety Report 7703484-6 (Version None)
Quarter: 2011Q3

REPORT INFORMATION
  Report Type: 
  Country: None (occurrence: None)
  Receive Date: 20110817
  Receipt Date: 20110809
  Transmission Date: 20111222
  Serious: Yes (Other)
  Sender: FDA-Public Use
  Company Number: 2011SP037449

PATIENT
  Age: 23 Year
  Sex: Female
  Weight: 88 kg

DRUGS (4)
  1. PENTASA [Concomitant]
  2. ASACOL [Concomitant]
  3. IMPLANON [Suspect]
     Indication: PRODUCT USED FOR UNKNOWN INDICATION
     Dosage: 1 DF, 68 MG
     Dates: start: 20100528, end: 20110726
  4. IMPLANON [Suspect]

REACTIONS (4)
  - SCRATCH [None]
  - INCORRECT DOSE ADMINISTERED BY DEVICE [None]
  - IMPLANT SITE IRRITATION [None]
  - DEVICE BREAKAGE [None]
